FAERS Safety Report 14259179 (Version 1)
Quarter: 2017Q4

REPORT INFORMATION
  Report Type: Spontaneous
  Country: US (occurrence: US)
  Receive Date: 20171207
  Receipt Date: 20171207
  Transmission Date: 20180321
  Serious: Yes (Other)
  Sender: FDA-Public Use
  Company Number: None

PATIENT
  Age: 62 Year
  Sex: Male
  Weight: 63.9 kg

DRUGS (5)
  1. HEPARIN 30ML MULTIDOSE VIAL [Suspect]
     Active Substance: HEPARIN SODIUM
     Indication: CATHETERISATION CARDIAC
     Route: 042
     Dates: start: 20171127
  2. ASPIRIN 81 MG [Concomitant]
     Active Substance: ASPIRIN
  3. HEPARIN 30ML MULTIDOSE VIAL [Suspect]
     Active Substance: HEPARIN SODIUM
     Indication: CATHETERISATION CARDIAC
     Dates: start: 20171127
  4. TICAGRELOR. [Concomitant]
     Active Substance: TICAGRELOR
  5. ENOXAPARIN [Concomitant]
     Active Substance: ENOXAPARIN

REACTIONS (2)
  - Coagulation time abnormal [None]
  - Coagulation time shortened [None]

NARRATIVE: CASE EVENT DATE: 20171127
